FAERS Safety Report 4816893-X (Version None)
Quarter: 2005Q4

REPORT INFORMATION
  Report Type: 
  Country: None (occurrence: None)
  Receive Date: 20051031
  Receipt Date: 20051031
  Transmission Date: 20060501
  Serious: Yes (Hospitalization)
  Sender: FDA-Public Use
  Company Number: None

PATIENT
  Age: 82 Year
  Sex: Male

DRUGS (13)
  1. WARFARIN [Suspect]
     Indication: DEEP VEIN THROMBOSIS
     Dosage: 5 MG MTWFSA ; 7.5 MG TH + SU
     Dates: start: 20040401
  2. RIVASTIGMINE [Concomitant]
  3. LORTAB [Concomitant]
  4. ALLOPURINOL [Concomitant]
  5. COLCHICINE [Concomitant]
  6. ISOSORBIDE [Concomitant]
  7. ZOCOR [Concomitant]
  8. NPH INSULIN [Concomitant]
  9. NTC [Concomitant]
  10. OMEPRAZOLE [Concomitant]
  11. LOPERAMIDE [Concomitant]
  12. ATENOLOL [Concomitant]
  13. CALCITONIN [Concomitant]

REACTIONS (1)
  - GASTROINTESTINAL HAEMORRHAGE [None]
